FAERS Safety Report 23028849 (Version 2)
Quarter: 2023Q4

REPORT INFORMATION
  Report Type: Spontaneous
  Country: US (occurrence: US)
  Receive Date: 20231004
  Receipt Date: 20231016
  Transmission Date: 20240110
  Serious: Yes (Hospitalization)
  Sender: FDA-Public Use
  Company Number: US-TEVA-2023-US-2930631

PATIENT
  Age: 36 Year
  Sex: Female

DRUGS (22)
  1. ACETAMINOPHEN\HYDROCODONE BITARTRATE [Suspect]
     Active Substance: ACETAMINOPHEN\HYDROCODONE BITARTRATE
     Indication: Arthralgia
     Dosage: DOSE: 2-4MG
     Route: 065
  2. HYDROMORPHONE [Suspect]
     Active Substance: HYDROMORPHONE
     Indication: Arthralgia
     Dosage: DOSE: 2-4MG
     Route: 065
  3. HYDROMORPHONE [Suspect]
     Active Substance: HYDROMORPHONE
     Dosage: DOSE: 2- 4MG EVERY 4 HOURS
     Route: 048
  4. HYDROMORPHONE [Suspect]
     Active Substance: HYDROMORPHONE
     Indication: Arthralgia
     Dosage: 24 MILLIGRAM DAILY; BASAL RATE
     Route: 042
  5. HYDROMORPHONE [Suspect]
     Active Substance: HYDROMORPHONE
     Dosage: 2.4 MILLIGRAM DAILY; AS NEEDED
     Route: 040
  6. HYDROMORPHONE [Suspect]
     Active Substance: HYDROMORPHONE
     Dosage: 48 MILLIGRAM DAILY; BASAL RATE
     Route: 042
  7. HYDROMORPHONE [Suspect]
     Active Substance: HYDROMORPHONE
     Dosage: 96 MILLIGRAM DAILY; AS NEEDED
     Route: 040
  8. MORPHINE SULFATE [Suspect]
     Active Substance: MORPHINE SULFATE
     Indication: Arthralgia
     Dosage: EXTENDED RELEASE
     Route: 065
  9. MORPHINE SULFATE [Suspect]
     Active Substance: MORPHINE SULFATE
     Dosage: 72 MILLIGRAM DAILY;
     Route: 050
  10. MORPHINE SULFATE [Suspect]
     Active Substance: MORPHINE SULFATE
     Dosage: 120 MILLIGRAM DAILY; AS NEEDED
     Route: 065
  11. MORPHINE SULFATE [Suspect]
     Active Substance: MORPHINE SULFATE
     Dosage: 30 MILLIGRAM DAILY;
     Route: 065
  12. BACLOFEN [Suspect]
     Active Substance: BACLOFEN
     Indication: Myoclonus
     Route: 065
  13. BACLOFEN [Suspect]
     Active Substance: BACLOFEN
     Indication: Hyperreflexia
  14. METHOCARBAMOL [Suspect]
     Active Substance: METHOCARBAMOL
     Indication: Myoclonus
     Route: 065
  15. METHOCARBAMOL [Suspect]
     Active Substance: METHOCARBAMOL
     Indication: Hyperreflexia
  16. METHADONE [Suspect]
     Active Substance: METHADONE HYDROCHLORIDE
     Indication: Arthralgia
     Dosage: FOR 2 DAYS
     Route: 065
  17. Trans-retinoic acid [Concomitant]
     Indication: Acute promyelocytic leukaemia
     Route: 065
  18. ARSENIC TRIOXIDE [Concomitant]
     Active Substance: ARSENIC TRIOXIDE
     Indication: Acute promyelocytic leukaemia
     Route: 065
  19. PREDNISONE [Concomitant]
     Active Substance: PREDNISONE
     Indication: Differentiation syndrome
     Route: 065
  20. PREDNISONE [Concomitant]
     Active Substance: PREDNISONE
     Indication: Prophylaxis
  21. DEXAMETHASONE [Concomitant]
     Active Substance: DEXAMETHASONE
     Indication: Differentiation syndrome
     Route: 042
  22. DEXAMETHASONE [Concomitant]
     Active Substance: DEXAMETHASONE
     Indication: Prophylaxis

REACTIONS (3)
  - Sedation [Unknown]
  - Hyperaesthesia [Recovering/Resolving]
  - Drug ineffective [Unknown]
